FAERS Safety Report 13205872 (Version 1)
Quarter: 2017Q1

REPORT INFORMATION
  Report Type: Spontaneous
  Country: US (occurrence: US)
  Receive Date: 20170208
  Receipt Date: 20170208
  Transmission Date: 20170428
  Serious: Yes (Other)
  Sender: FDA-Public Use
  Company Number: None

PATIENT
  Age: 45 Year
  Sex: Female
  Weight: 63 kg

DRUGS (4)
  1. SINGULAIR [Concomitant]
     Active Substance: MONTELUKAST SODIUM
  2. ZYRTEC [Concomitant]
     Active Substance: CETIRIZINE HYDROCHLORIDE
  3. PROAIR HFA [Suspect]
     Active Substance: ALBUTEROL SULFATE
     Indication: ASTHMA
     Dosage: ?          QUANTITY:1 PUFF(S);?
     Route: 055
  4. SYMBICORT [Concomitant]
     Active Substance: BUDESONIDE\FORMOTEROL FUMARATE DIHYDRATE

REACTIONS (10)
  - Tremor [None]
  - Headache [None]
  - Dizziness [None]
  - Incorrect dose administered by device [None]
  - Hypertension [None]
  - Hypoaesthesia [None]
  - Device malfunction [None]
  - Speech disorder [None]
  - Flushing [None]
  - Heart rate increased [None]

NARRATIVE: CASE EVENT DATE: 20170208
